FAERS Safety Report 14163579 (Version 1)
Quarter: 2017Q4

REPORT INFORMATION
  Report Type: Spontaneous
  Country: JP (occurrence: JP)
  Receive Date: 20171106
  Receipt Date: 20171106
  Transmission Date: 20180321
  Serious: No
  Sender: FDA-Public Use
  Company Number: JP-BIOGEN-2017BV000375

PATIENT
  Age: 37 Year
  Sex: Male

DRUGS (1)
  1. ALPROLIX [Suspect]
     Active Substance: EFTRENONACOG ALFA
     Indication: FACTOR IX DEFICIENCY
     Dosage: DOSE UNKNOWN, ROUTINE TRATMENT
     Route: 042

REACTIONS (1)
  - Haemorrhage [Unknown]
